FAERS Safety Report 20967232 (Version 1)
Quarter: 2022Q2

REPORT INFORMATION
  Report Type: Spontaneous
  Country: US (occurrence: US)
  Receive Date: 20220616
  Receipt Date: 20220616
  Transmission Date: 20220721
  Serious: Yes (Other)
  Sender: FDA-Public Use
  Company Number: US-KASDIRECT-2022-US-013885

PATIENT
  Age: 8 Month
  Sex: Male
  Weight: 9.07 kg

DRUGS (1)
  1. SPF 50 PLUS SUNSCREEN ALL MINERAL ACTIVE INGREDIENTS [Suspect]
     Active Substance: TITANIUM DIOXIDE\ZINC OXIDE
     Indication: Prophylaxis
     Dosage: APPLIED TO SKIN OF FACE EVERY 2 HOURS X 3 APPLICATIONS
     Route: 061
     Dates: start: 20220604, end: 20220604

REACTIONS (8)
  - Blister [Not Recovered/Not Resolved]
  - Drug ineffective [Recovered/Resolved]
  - Burns second degree [Not Recovered/Not Resolved]
  - Crying [Recovered/Resolved]
  - Wound [Not Recovered/Not Resolved]
  - Pain [Not Recovered/Not Resolved]
  - Erythema [Not Recovered/Not Resolved]
  - Sunburn [Not Recovered/Not Resolved]

NARRATIVE: CASE EVENT DATE: 20220604
